FAERS Safety Report 18464778 (Version 1)
Quarter: 2020Q4

REPORT INFORMATION
  Report Type: Spontaneous
  Country: CN (occurrence: CN)
  Receive Date: 20201105
  Receipt Date: 20201105
  Transmission Date: 20210114
  Serious: Yes (Other)
  Sender: FDA-Public Use
  Company Number: CN-009507513-2011CHN000741

PATIENT
  Age: 71 Year
  Sex: Female
  Weight: 50 kg

DRUGS (6)
  1. ESTAZOLAM. [Concomitant]
     Active Substance: ESTAZOLAM
     Indication: SLEEP DISORDER
     Dosage: 2 MILLIGRAM, BEFORE BED (HS ALSO REPORTED AS QD)
     Route: 048
     Dates: start: 20150615
  2. ESTAZOLAM. [Concomitant]
     Active Substance: ESTAZOLAM
     Dosage: 2 MILLIGRAM, BEFORE BED (HS ALSO REPORTED AS QD)
     Route: 048
     Dates: start: 20200811, end: 20201028
  3. ZOCOR [Suspect]
     Active Substance: SIMVASTATIN
     Dosage: 20 MILLIGRAM, 0.5 TABLET, EVERY WEEK (QW)
     Route: 048
     Dates: start: 20200829, end: 20201023
  4. ZOCOR [Suspect]
     Active Substance: SIMVASTATIN
     Indication: HYPERLIPIDAEMIA
     Dosage: 20 MILLIGRAM, 0.5 TABLET, BEFORE BED (HS ALSO REPORTED AS (QD)
     Route: 048
     Dates: start: 20180426
  5. ZOCOR [Suspect]
     Active Substance: SIMVASTATIN
     Dosage: 20 MILLIGRAM, 0.5 TABLET, BEFORE BED (HS ALSO REPORTED AS (QD)
     Route: 048
     Dates: start: 20200811, end: 20200818
  6. ZOCOR [Suspect]
     Active Substance: SIMVASTATIN
     Dosage: 20 MILLIGRAM, 0.5 TABLET, EVERY OTHER DAY(QOD)
     Route: 048
     Dates: start: 20200820, end: 202008

REACTIONS (3)
  - Hypoaesthesia [Recovering/Resolving]
  - Insomnia [Recovering/Resolving]
  - Hyperhidrosis [Recovering/Resolving]

NARRATIVE: CASE EVENT DATE: 20201018
